FAERS Safety Report 14290412 (Version 3)
Quarter: 2018Q1

REPORT INFORMATION
  Report Type: Spontaneous
  Country: PL (occurrence: PL)
  Receive Date: 20171215
  Receipt Date: 20180306
  Transmission Date: 20180509
  Serious: Yes (Other)
  Sender: FDA-Public Use
  Company Number: PL-ASTRAZENECA-2017SF25395

PATIENT
  Age: 53 Year
  Sex: Male

DRUGS (4)
  1. ROSUVASTATIN. [Suspect]
     Active Substance: ROSUVASTATIN
     Indication: LIPIDS ABNORMAL
     Route: 048
  2. NILOTINIB [Suspect]
     Active Substance: NILOTINIB
     Indication: CHRONIC MYELOID LEUKAEMIA
     Route: 065
  3. INSULIN [Concomitant]
     Active Substance: INSULIN NOS
     Indication: DIABETIC RETINOPATHY
     Dosage: UNK
     Route: 065
  4. INSULIN [Concomitant]
     Active Substance: INSULIN NOS
     Indication: DIABETIC NEPHROPATHY
     Dosage: UNK
     Route: 065

REACTIONS (6)
  - General physical health deterioration [Unknown]
  - Cardiac failure chronic [Recovered/Resolved]
  - Blood glucose fluctuation [Unknown]
  - Myocardial ischaemia [Unknown]
  - Lipids abnormal [Unknown]
  - Diabetic foot [Unknown]
